FAERS Safety Report 18470250 (Version 1)
Quarter: 2020Q4

REPORT INFORMATION
  Report Type: Report from Study
  Country: US (occurrence: US)
  Receive Date: 20201102
  Receipt Date: 20201102
  Transmission Date: 20210114
  Serious: Yes (Hospitalization, Other)
  Sender: FDA-Public Use
  Company Number: US-BAYER-2020-204559

PATIENT
  Age: 46 Year
  Sex: Male

DRUGS (1)
  1. STIVARGA [Suspect]
     Active Substance: REGORAFENIB
     Indication: COLORECTAL CANCER
     Dosage: 80 MG, QD
     Route: 048
     Dates: start: 20200814

REACTIONS (8)
  - Hospitalisation [Not Recovered/Not Resolved]
  - Traumatic liver injury [None]
  - Pain [None]
  - Flatulence [Unknown]
  - Off label use [None]
  - Fatigue [Unknown]
  - Drug ineffective [Not Recovered/Not Resolved]
  - Blood iron decreased [None]

NARRATIVE: CASE EVENT DATE: 20200814
